FAERS Safety Report 4647085-5 (Version None)
Quarter: 2005Q2

REPORT INFORMATION
  Report Type: 
  Country: None (occurrence: None)
  Receive Date: 20050331
  Receipt Date: 20050128
  Transmission Date: 20051028
  Serious: No
  Sender: FDA-Public Use
  Company Number: 05P-163-0288543-00

PATIENT
  Age: 41 Year
  Sex: Female
  Weight: 74.8435 kg

DRUGS (2)
  1. HUMIRA [Suspect]
     Indication: TUMOUR NECROSIS
     Dosage: 40 MG, 1 IN 2 WK, SUBCUTANEOUS
     Route: 058
     Dates: start: 20041029
  2. ASPIRIN [Concomitant]

REACTIONS (5)
  - ALOPECIA [None]
  - INCREASED APPETITE [None]
  - INJECTION SITE IRRITATION [None]
  - NAUSEA [None]
  - STOMACH DISCOMFORT [None]
